FAERS Safety Report 17410294 (Version 1)
Quarter: 2020Q1

REPORT INFORMATION
  Report Type: Spontaneous
  Country: US (occurrence: US)
  Receive Date: 20200212
  Receipt Date: 20200212
  Transmission Date: 20200409
  Serious: No
  Sender: FDA-Public Use
  Company Number: US-SA-2020SA035823

PATIENT
  Age: 14 Year
  Sex: Male

DRUGS (1)
  1. ALPROLIX [Suspect]
     Active Substance: EFTRENONACOG ALFA
     Indication: FACTOR IX DEFICIENCY
     Dosage: 2500, QW
     Route: 042
     Dates: start: 20140824

REACTIONS (2)
  - Head injury [Unknown]
  - Influenza [Not Recovered/Not Resolved]
